FAERS Safety Report 24166909 (Version 1)
Quarter: 2024Q3

REPORT INFORMATION
  Report Type: Spontaneous
  Country: US (occurrence: US)
  Receive Date: 20240802
  Receipt Date: 20240802
  Transmission Date: 20241017
  Serious: No
  Sender: ENDO
  Company Number: ENDB23-03052

PATIENT
  Sex: Male

DRUGS (13)
  1. EDEX [Suspect]
     Active Substance: ALPROSTADIL
     Indication: Erectile dysfunction
     Dosage: 10 ?G, Q3D (WAITED 48 HOURS, ALTERNATING LOCATIONS, AND SIDES)
     Route: 051
     Dates: end: 2023
  2. EDEX [Suspect]
     Active Substance: ALPROSTADIL
     Indication: Erectile dysfunction
     Dosage: 10 ?G, Q3D (WAITED 48 HOURS, ALTERNATING LOCATIONS, AND SIDES)
     Route: 051
     Dates: end: 2023
  3. EDEX [Suspect]
     Active Substance: ALPROSTADIL
     Indication: Erectile dysfunction
     Dosage: 10 ?G, Q3D (WAITED 48 HOURS, ALTERNATING LOCATIONS, AND SIDES)
     Route: 051
     Dates: end: 2023
  4. EDEX [Suspect]
     Active Substance: ALPROSTADIL
     Indication: Erectile dysfunction
     Dosage: 10 ?G, Q3D (WAITED 48 HOURS, ALTERNATING LOCATIONS, AND SIDES)
     Route: 051
     Dates: end: 2023
  5. EDEX [Suspect]
     Active Substance: ALPROSTADIL
     Indication: Erectile dysfunction
     Dosage: 10 ?G, Q3D (WAITED 48 HOURS, ALTERNATING LOCATIONS, AND SIDES)
     Route: 051
     Dates: end: 2023
  6. EDEX [Suspect]
     Active Substance: ALPROSTADIL
     Dosage: 20 ?G, UNKNOWN
     Route: 051
  7. EDEX [Suspect]
     Active Substance: ALPROSTADIL
     Dosage: 20 ?G, UNKNOWN
     Route: 051
  8. EDEX [Suspect]
     Active Substance: ALPROSTADIL
     Dosage: 20 ?G, UNKNOWN
     Route: 051
  9. EDEX [Suspect]
     Active Substance: ALPROSTADIL
     Dosage: 20 ?G, UNKNOWN
     Route: 051
  10. EDEX [Suspect]
     Active Substance: ALPROSTADIL
     Dosage: 20 ?G, UNKNOWN
     Route: 051
  11. LANTUS [Concomitant]
     Active Substance: INSULIN GLARGINE
     Indication: Diabetes mellitus
     Dosage: UNK UNKNOWN, UNKNOWN
     Route: 065
  12. SYNTHROID [Concomitant]
     Active Substance: LEVOTHYROXINE SODIUM
     Indication: Product used for unknown indication
     Dosage: UNK UNKNOWN, UNKNOWN
     Route: 065
  13. UNSPECIFIED INGREDIENT [Concomitant]
     Active Substance: UNSPECIFIED INGREDIENT
     Indication: Product used for unknown indication
     Dosage: UNK UNKNOWN, UNKNOWN
     Route: 065

REACTIONS (6)
  - Penis disorder [Unknown]
  - Painful erection [Unknown]
  - Penile burning sensation [Unknown]
  - Therapeutic product effect incomplete [Unknown]
  - Product communication issue [Unknown]
  - Circumstance or information capable of leading to medication error [Unknown]
